FAERS Safety Report 5446053-3 (Version None)
Quarter: 2007Q3

REPORT INFORMATION
  Report Type: 
  Country: None (occurrence: None)
  Receive Date: 20070907
  Receipt Date: 20060728
  Transmission Date: 20080115
  Serious: No
  Sender: FDA-Public Use
  Company Number: A0614602A

PATIENT
  Sex: Female

DRUGS (2)
  1. ALBENDAZOLE [Suspect]
     Indication: DRUG USE FOR UNKNOWN INDICATION
     Route: 048
  2. PARAGONE [Suspect]
     Indication: DRUG USE FOR UNKNOWN INDICATION
     Route: 065

REACTIONS (5)
  - INFECTION PARASITIC [None]
  - INSOMNIA [None]
  - MALAISE [None]
  - OVARIAN CYST [None]
  - PALPITATIONS [None]
